FAERS Safety Report 18864708 (Version 4)
Quarter: 2021Q1

REPORT INFORMATION
  Report Type: Report from Study
  Country: BR (occurrence: BR)
  Receive Date: 20210208
  Receipt Date: 20210329
  Transmission Date: 20210420
  Serious: Yes (Hospitalization, Other)
  Sender: FDA-Public Use
  Company Number: NVSC2021BR027977

PATIENT
  Age: 77 Year
  Sex: Female
  Weight: 53 kg

DRUGS (6)
  1. CARVEDILOL. [Concomitant]
     Active Substance: CARVEDILOL
     Indication: PRODUCT USED FOR UNKNOWN INDICATION
     Dosage: 1 DF (3, 125 MG)
     Route: 048
     Dates: start: 20210125
  2. ENTRESTO [Suspect]
     Active Substance: SACUBITRIL\VALSARTAN
     Indication: CARDIOMEGALY
     Dosage: 1 DF, BID (60 TABLETS)
     Route: 065
  3. DIGOXIN. [Concomitant]
     Active Substance: DIGOXIN
     Dosage: 25 MG (1/2 TABLET A DAY)
     Route: 048
  4. FUROSEMIDE. [Concomitant]
     Active Substance: FUROSEMIDE
     Indication: POLYURIA
     Dosage: 40 MG, QD
     Route: 048
     Dates: start: 20210125, end: 20210216
  5. DIGOXIN. [Concomitant]
     Active Substance: DIGOXIN
     Indication: CARDIOMEGALY
     Dosage: 1 DF (0,5MG)
     Route: 048
     Dates: start: 20210125, end: 20210216
  6. IBUPROFEN. [Concomitant]
     Active Substance: IBUPROFEN
     Indication: PRODUCT USED FOR UNKNOWN INDICATION
     Dosage: UNK
     Route: 042
     Dates: start: 20210125, end: 20210216

REACTIONS (6)
  - Dyspnoea [Recovered/Resolved]
  - Cardiac disorder [Unknown]
  - Cough [Recovered/Resolved]
  - Product label issue [Unknown]
  - Product use in unapproved indication [Unknown]
  - Fatigue [Recovered/Resolved]

NARRATIVE: CASE EVENT DATE: 20201216
